FAERS Safety Report 25116089 (Version 1)
Quarter: 2025Q1

REPORT INFORMATION
  Report Type: Spontaneous
  Country: US (occurrence: US)
  Receive Date: 20250325
  Receipt Date: 20250325
  Transmission Date: 20250408
  Serious: No
  Sender: AMGEN
  Company Number: US-AMGEN-USASP2025056415

PATIENT
  Sex: Female

DRUGS (4)
  1. OTEZLA [Suspect]
     Active Substance: APREMILAST
     Indication: Psoriatic arthropathy
     Dosage: 30 MILLIGRAM, BID
     Route: 048
  2. COSENTYX [Concomitant]
     Active Substance: SECUKINUMAB
  3. HUMIRA [Concomitant]
     Active Substance: ADALIMUMAB
  4. LIDOCAINE [Concomitant]
     Active Substance: LIDOCAINE

REACTIONS (6)
  - Pyrexia [Unknown]
  - Pain [Unknown]
  - Therapy interrupted [Unknown]
  - Loss of personal independence in daily activities [Unknown]
  - Eye contusion [Unknown]
  - Rash [Unknown]
